FAERS Safety Report 16541150 (Version 3)
Quarter: 2019Q3

REPORT INFORMATION
  Report Type: Report from Study
  Country: FR (occurrence: FR)
  Receive Date: 20190708
  Receipt Date: 20190906
  Transmission Date: 20191004
  Serious: Yes (Life-Threatening, Other)
  Sender: FDA-Public Use
  Company Number: FR-JNJFOC-20190633801

PATIENT
  Sex: Male

DRUGS (9)
  1. DIGOXINE [Concomitant]
     Active Substance: DIGOXIN
     Dates: start: 20181008
  2. INIPOMP [Concomitant]
     Active Substance: PANTOPRAZOLE SODIUM
     Dates: start: 20181008
  3. USTEKINUMAB [Suspect]
     Active Substance: USTEKINUMAB
     Route: 058
     Dates: start: 201810, end: 20190509
  4. FENO [Concomitant]
     Dates: start: 20181008
  5. USTEKINUMAB [Suspect]
     Active Substance: USTEKINUMAB
     Indication: PSORIASIS
     Route: 058
     Dates: start: 20181008, end: 201810
  6. ASPIRIN. [Concomitant]
     Active Substance: ASPIRIN
     Dates: start: 20181008
  7. OTEZLA [Suspect]
     Active Substance: APREMILAST
     Indication: PRODUCT USED FOR UNKNOWN INDICATION
     Route: 048
     Dates: start: 20190509
  8. RAMIPRIL. [Concomitant]
     Active Substance: RAMIPRIL
     Dates: start: 20181008
  9. XARELTO [Concomitant]
     Active Substance: RIVAROXABAN
     Dates: start: 20181008

REACTIONS (2)
  - Hepatocellular carcinoma [Not Recovered/Not Resolved]
  - Lung adenocarcinoma [Not Recovered/Not Resolved]

NARRATIVE: CASE EVENT DATE: 201903
